FAERS Safety Report 6195759-X (Version None)
Quarter: 2009Q2

REPORT INFORMATION
  Report Type: 
  Country: None (occurrence: None)
  Receive Date: 20090520
  Receipt Date: 20090507
  Transmission Date: 20091009
  Serious: Yes (Other)
  Sender: FDA-Public Use
  Company Number: GB-RANBAXY-2007RR-07883

PATIENT
  Age: 72 Year
  Sex: Male
  Weight: 72 kg

DRUGS (1)
  1. AMOXICILLIN AND CLAVULANATE POTASSIUM [Suspect]
     Indication: CELLULITIS
     Route: 048
     Dates: start: 20070326, end: 20070402

REACTIONS (5)
  - CHROMATURIA [None]
  - DIARRHOEA [None]
  - HEPATITIS E [None]
  - LIVER FUNCTION TEST ABNORMAL [None]
  - NAUSEA [None]
